FAERS Safety Report 5478998-2 (Version None)
Quarter: 2007Q4

REPORT INFORMATION
  Report Type: 
  Country: None (occurrence: None)
  Receive Date: 20071006
  Receipt Date: 20070924
  Transmission Date: 20080405
  Serious: Yes (Other)
  Sender: FDA-Public Use
  Company Number: DE-PFIZER INC-2007077366

PATIENT
  Sex: Male
  Weight: 80 kg

DRUGS (4)
  1. LYRICA [Suspect]
     Indication: POLYNEUROPATHY
     Route: 048
     Dates: start: 20070301, end: 20070901
  2. METAMIZOLE [Concomitant]
     Route: 048
     Dates: start: 20070401, end: 20070901
  3. RAMIPRIL [Concomitant]
     Route: 048
  4. TETRAZEPAM [Concomitant]
     Route: 048

REACTIONS (4)
  - HAEMATOMA [None]
  - MUSCLE INJURY [None]
  - MYALGIA [None]
  - SWELLING [None]
